FAERS Safety Report 5896698-1 (Version None)
Quarter: 2008Q3

REPORT INFORMATION
  Report Type: 
  Country: None (occurrence: None)
  Receive Date: 20080924
  Receipt Date: 20071127
  Transmission Date: 20090109
  Serious: Yes (Other)
  Sender: FDA-Public Use
  Company Number: US-BAYER-200713685BWH

PATIENT
  Age: 50 Year
  Sex: Female
  Weight: 83 kg

DRUGS (2)
  1. AVELOX [Suspect]
     Indication: RESPIRATORY TRACT INFECTION
     Dosage: TOTAL DAILY DOSE: 400 MG  UNIT DOSE: 400 MG
     Route: 048
     Dates: start: 20071003, end: 20071003
  2. SYNTHROID [Concomitant]
     Indication: THYROIDITIS
     Route: 048
     Dates: start: 19920101

REACTIONS (7)
  - CONFUSIONAL STATE [None]
  - DAYDREAMING [None]
  - DEAFNESS [None]
  - DIZZINESS [None]
  - GAIT DISTURBANCE [None]
  - NAUSEA [None]
  - TREMOR [None]
